FAERS Safety Report 8279907-3 (Version None)
Quarter: 2012Q2

REPORT INFORMATION
  Report Type: 
  Country: None (occurrence: None)
  Receive Date: 20120412
  Receipt Date: 20120410
  Transmission Date: 20120825
  Serious: No
  Sender: FDA-Public Use
  Company Number: US-PFIZER INC-2012089858

PATIENT
  Sex: Female
  Weight: 106 kg

DRUGS (6)
  1. BUPROPION HYDROCHLORIDE [Concomitant]
     Dosage: 100 MG, DAILY
     Route: 048
  2. LAMOTRIGINE [Concomitant]
     Dosage: 400 MG, DAILY
     Route: 048
  3. VENLAFAXINE HCL [Suspect]
     Indication: DEPRESSION
     Dosage: UNK
  4. VENLAFAXINE HCL [Suspect]
     Dosage: UNK
     Dates: start: 20120401, end: 20120406
  5. TRAZODONE [Concomitant]
     Indication: SLEEP DISORDER
     Dosage: 100 MG, AS NEEDED
  6. VENLAFAXINE HCL [Suspect]
     Dosage: 37.5 MG, DAILY
     Dates: start: 20120220, end: 20120309

REACTIONS (4)
  - AMNESIA [None]
  - DRUG INEFFECTIVE [None]
  - VISION BLURRED [None]
  - HEADACHE [None]
